FAERS Safety Report 4961112-7 (Version None)
Quarter: 2006Q1

REPORT INFORMATION
  Report Type: 
  Country: None (occurrence: None)
  Receive Date: 20060328
  Receipt Date: 20060316
  Transmission Date: 20060701
  Serious: Yes (Hospitalization)
  Sender: FDA-Public Use
  Company Number: 2006030505

PATIENT
  Age: 74 Year
  Sex: Male

DRUGS (2)
  1. ZITHROMAX [Suspect]
     Indication: LUNG DISORDER
     Dosage: (DAILY), ORAL
     Route: 048
     Dates: start: 20060114, end: 20060117
  2. SINTROM [Concomitant]

REACTIONS (2)
  - EPISTAXIS [None]
  - PROTHROMBIN TIME PROLONGED [None]
